FAERS Safety Report 7397120-9 (Version None)
Quarter: 2011Q2

REPORT INFORMATION
  Report Type: 
  Country: None (occurrence: None)
  Receive Date: 20110406
  Receipt Date: 20110328
  Transmission Date: 20111010
  Serious: Yes (Congenital Anomaly)
  Sender: FDA-Public Use
  Company Number: A0921349A

PATIENT
  Sex: Male
  Weight: 3.9 kg

DRUGS (1)
  1. PAXIL [Suspect]

REACTIONS (3)
  - DRUG EXPOSURE DURING PREGNANCY [None]
  - CLEFT LIP [None]
  - CLEFT PALATE [None]
